FAERS Safety Report 11261015 (Version 1)
Quarter: 2015Q3

REPORT INFORMATION
  Report Type: Spontaneous
  Country: US (occurrence: US)
  Receive Date: 20150710
  Receipt Date: 20150710
  Transmission Date: 20151125
  Serious: No
  Sender: FDA-Public Use
  Company Number: US-PURDUE-USA-2014-0119943

PATIENT
  Sex: Female

DRUGS (1)
  1. BUTRANS [Suspect]
     Active Substance: BUPRENORPHINE
     Indication: PAIN
     Dosage: 5 MCG/HR, WEEKLY
     Route: 062
     Dates: start: 20141209, end: 20141211

REACTIONS (4)
  - Palpitations [Recovered/Resolved]
  - Anxiety [Unknown]
  - Dyspnoea [Recovered/Resolved]
  - Chest pain [Recovered/Resolved]
